FAERS Safety Report 15857224 (Version 1)
Quarter: 2018Q4

REPORT INFORMATION
  Report Type: Spontaneous
  Country: US (occurrence: US)
  Receive Date: 20181226
  Receipt Date: 20181226
  Transmission Date: 20190205
  Serious: No
  Sender: FDA-Public Use
  Company Number: None

PATIENT
  Age: 19 Year
  Sex: Male
  Weight: 67.59 kg

DRUGS (1)
  1. NUWIQ [Suspect]
     Active Substance: ANTIHEMOPHILIC FACTOR, HUMAN RECOMBINANT
     Indication: FACTOR VIII DEFICIENCY
     Dosage: 1655 UNITS +/-10% WE INTRAVENOUS
     Route: 042
     Dates: start: 20180628

REACTIONS (3)
  - Educational problem [None]
  - Abnormal behaviour [None]
  - Personality change [None]

NARRATIVE: CASE EVENT DATE: 20181226
